FAERS Safety Report 8052541-6 (Version None)
Quarter: 2012Q1

REPORT INFORMATION
  Report Type: 
  Country: None (occurrence: None)
  Receive Date: 20120111
  Receipt Date: 20100923
  Transmission Date: 20120608
  Serious: Yes (Hospitalization)
  Sender: FDA-Public Use
  Company Number: E2010-05160

PATIENT
  Age: 46 Year
  Sex: Female

DRUGS (6)
  1. BUFLOMEDIL [Concomitant]
  2. ANTADYS (FLURBIPROFENE) [Concomitant]
  3. EFFEXOR [Concomitant]
  4. TUBERSOL [Suspect]
     Indication: TUBERCULIN TEST
     Route: 023
     Dates: start: 20100726, end: 20100726
  5. ENGERIX B (HEPATITIS B VACCINE), OTHER MFR, LOT NOT REP, NR [Suspect]
     Indication: IMMUNISATION
     Route: 058
     Dates: start: 20100726, end: 20100726
  6. PROPRANOLOL (CHLORHYDRATE PROPANOLOL) [Concomitant]

REACTIONS (3)
  - THROMBOPHLEBITIS SUPERFICIAL [None]
  - DEEP VEIN THROMBOSIS [None]
  - PHLEBITIS [None]
